FAERS Safety Report 7132425-8 (Version None)
Quarter: 2010Q4

REPORT INFORMATION
  Report Type: 
  Country: None (occurrence: None)
  Receive Date: 20101202
  Receipt Date: 20101122
  Transmission Date: 20110411
  Serious: Yes (Other)
  Sender: FDA-Public Use
  Company Number: US-ENDO PHARMACEUTICALS INC.-OPIR20100044

PATIENT
  Sex: Male
  Weight: 86.26 kg

DRUGS (4)
  1. OPANA [Suspect]
     Indication: PAIN MANAGEMENT
     Route: 045
  2. OPANA [Suspect]
     Route: 045
  3. OPANA [Suspect]
     Route: 045
  4. OPANA ER [Suspect]
     Indication: PAIN MANAGEMENT
     Dosage: UNK

REACTIONS (2)
  - DRUG DEPENDENCE [None]
  - INCORRECT ROUTE OF DRUG ADMINISTRATION [None]
